FAERS Safety Report 7336060-8 (Version None)
Quarter: 2011Q1

REPORT INFORMATION
  Report Type: 
  Country: None (occurrence: None)
  Receive Date: 20110307
  Receipt Date: 20110303
  Transmission Date: 20110831
  Serious: Yes (Death)
  Sender: FDA-Public Use
  Company Number: BR-ABBOTT-11P-020-0709081-00

PATIENT
  Sex: Male

DRUGS (2)
  1. OMEPRAZOLE [Concomitant]
     Indication: GASTRIC DISORDER
  2. HUMIRA [Suspect]
     Indication: RHEUMATOID ARTHRITIS
     Route: 058

REACTIONS (2)
  - RESPIRATORY ARREST [None]
  - BRONCHITIS [None]
